FAERS Safety Report 24047562 (Version 5)
Quarter: 2024Q3

REPORT INFORMATION
  Report Type: Spontaneous
  Country: JP (occurrence: JP)
  Receive Date: 20240703
  Receipt Date: 20240910
  Transmission Date: 20241016
  Serious: Yes (Death, Hospitalization)
  Sender: ELI LILLY AND CO
  Company Number: JP-ELI_LILLY_AND_COMPANY-JP202406016139

PATIENT
  Age: 68 Year
  Sex: Male
  Weight: 74.3 kg

DRUGS (16)
  1. CYRAMZA [Suspect]
     Active Substance: RAMUCIRUMAB
     Indication: Non-small cell lung cancer recurrent
     Dosage: 780 MG
     Route: 041
     Dates: start: 20240523, end: 20240612
  2. DOCETAXEL [Suspect]
     Active Substance: DOCETAXEL\DOCETAXEL ANHYDROUS
     Indication: Non-small cell lung cancer recurrent
     Dosage: 115 MG
     Route: 041
     Dates: start: 20240523, end: 20240612
  3. DECADRON [Concomitant]
     Active Substance: DEXAMETHASONE
     Indication: Metastases to central nervous system
     Dosage: 1 MG, DAILY
     Route: 048
     Dates: start: 20240207, end: 20240621
  4. ISOSORBIDE [Concomitant]
     Active Substance: ISOSORBIDE
     Indication: Metastases to central nervous system
     Dosage: 1 DOSAGE FORM, DAILY
     Route: 048
     Dates: start: 20240207, end: 20240621
  5. LEVETIRACETAM [Concomitant]
     Active Substance: LEVETIRACETAM
     Indication: Metastases to central nervous system
     Dosage: 1000 MG, DAILY
     Route: 048
     Dates: start: 20240131
  6. LEVETIRACETAM [Concomitant]
     Active Substance: LEVETIRACETAM
     Dosage: UNK
     Route: 041
  7. LEVETIRACETAM [Concomitant]
     Active Substance: LEVETIRACETAM
     Indication: Metastases to central nervous system
     Dosage: UNK
     Route: 042
  8. SULFAMETHOXAZOLE\TRIMETHOPRIM [Concomitant]
     Active Substance: SULFAMETHOXAZOLE\TRIMETHOPRIM
     Indication: Prophylaxis
     Dosage: 80 MG, DAILY
     Route: 048
     Dates: start: 20240205
  9. NEUROTROPIN MEXIBEL [Concomitant]
     Indication: Neuralgia
     Dosage: 4 DOSAGE FORM, DAILY
     Route: 048
     Dates: start: 20240123, end: 20240621
  10. NEUROTROPIN MEXIBEL [Concomitant]
     Indication: Hypoaesthesia
  11. PREGABALIN [Concomitant]
     Active Substance: PREGABALIN
     Indication: Neuralgia
     Dosage: 150 MG, DAILY
     Route: 048
     Dates: start: 20240516, end: 20240621
  12. PREGABALIN [Concomitant]
     Active Substance: PREGABALIN
     Indication: Hypoaesthesia
  13. CALCIUM CARBONATE\CHOLECALCIFEROL\MAGNESIUM CARBONATE [Concomitant]
     Active Substance: CALCIUM CARBONATE\CHOLECALCIFEROL\MAGNESIUM CARBONATE
     Indication: Metastases to bone
     Dosage: 2 DOSAGE FORM, DAILY
     Route: 048
     Dates: start: 20230512, end: 20240621
  14. LANSOPRAZOLE [Concomitant]
     Active Substance: LANSOPRAZOLE
     Indication: Prophylaxis against gastrointestinal ulcer
     Dosage: 30 MG, DAILY
     Route: 048
     Dates: start: 20230107
  15. MIYA-BM [Concomitant]
     Active Substance: CLOSTRIDIUM BUTYRICUM SPORES STRAIN M-55
     Indication: Constipation
     Dosage: 60 MG, DAILY
     Route: 048
     Dates: start: 20230626, end: 20240621
  16. HEPARIN CALCIUM [Concomitant]
     Active Substance: HEPARIN CALCIUM
     Dosage: UNK
     Route: 058
     Dates: start: 20230313

REACTIONS (2)
  - Pulmonary toxicity [Fatal]
  - COVID-19 [Unknown]

NARRATIVE: CASE EVENT DATE: 20240620
